FAERS Safety Report 9966141 (Version 1)
Quarter: 2014Q1

REPORT INFORMATION
  Report Type: Report from Study
  Country: US (occurrence: US)
  Receive Date: 20140305
  Receipt Date: 20140305
  Transmission Date: 20141002
  Serious: No
  Sender: FDA-Public Use
  Company Number: US-ABBVIE-13P-163-1122182-00

PATIENT
  Age: 62 Year
  Sex: Female

DRUGS (9)
  1. HUMIRA [Suspect]
     Indication: CROHN^S DISEASE
     Dates: start: 20130529, end: 20130626
  2. ZIAC [Concomitant]
     Indication: HYPERTENSION
     Dosage: 6/6.25MG DAILY
  3. PROTONIX [Concomitant]
     Indication: GASTROOESOPHAGEAL REFLUX DISEASE
     Dosage: 40MG DAILY
  4. TRILIPIX [Concomitant]
     Indication: BLOOD CHOLESTEROL INCREASED
     Dosage: 135MG DAILY
  5. TRILIPIX [Concomitant]
     Indication: BLOOD TRIGLYCERIDES INCREASED
  6. LIPITOR [Concomitant]
     Indication: BLOOD CHOLESTEROL INCREASED
     Dosage: 40MG DAILY
  7. JANUMET [Concomitant]
     Indication: BLOOD TRIGLYCERIDES INCREASED
     Dosage: DAILY
  8. JANUMET [Concomitant]
     Indication: GLUCOSE TOLERANCE IMPAIRED
  9. EFFEXOR XR [Concomitant]
     Indication: ANXIETY
     Dosage: EVERY AM

REACTIONS (5)
  - Rash [Not Recovered/Not Resolved]
  - Oropharyngeal pain [Not Recovered/Not Resolved]
  - Tonsillar hypertrophy [Not Recovered/Not Resolved]
  - Wheezing [Not Recovered/Not Resolved]
  - Psoriasis [Not Recovered/Not Resolved]
